FAERS Safety Report 20815016 (Version 2)
Quarter: 2022Q2

REPORT INFORMATION
  Report Type: Spontaneous
  Country: CN (occurrence: CN)
  Receive Date: 20220511
  Receipt Date: 20220628
  Transmission Date: 20220720
  Serious: Yes (Other)
  Sender: FDA-Public Use
  Company Number: CN-BAYER-2022A067665

PATIENT
  Age: 39 Year
  Sex: Female

DRUGS (1)
  1. AVELOX [Suspect]
     Active Substance: MOXIFLOXACIN HYDROCHLORIDE
     Indication: Pulmonary mass
     Dosage: UNK
     Route: 048
     Dates: start: 202205, end: 202205

REACTIONS (2)
  - Abnormal loss of weight [Recovering/Resolving]
  - Off label use [None]

NARRATIVE: CASE EVENT DATE: 20220501
